FAERS Safety Report 11437806 (Version 2)
Quarter: 2015Q3

REPORT INFORMATION
  Report Type: Spontaneous
  Country: US (occurrence: US)
  Receive Date: 20150831
  Receipt Date: 20150904
  Transmission Date: 20151125
  Serious: Yes (Life-Threatening)
  Sender: FDA-Public Use
  Company Number: US-BAYER-2015-411847

PATIENT
  Age: 52 Year
  Sex: Female
  Weight: 78.5 kg

DRUGS (5)
  1. BAYER ASPIRIN REGIMEN CHEWABLE LOW DOSE ASPIRIN ORANGE [Suspect]
     Active Substance: ASPIRIN
     Indication: ISCHAEMIC HEART DISEASE PROPHYLAXIS
     Dosage: 1 DF, QD
     Route: 048
     Dates: start: 2012, end: 201410
  2. XANAX [Concomitant]
     Active Substance: ALPRAZOLAM
  3. SIMVASTATIN. [Concomitant]
     Active Substance: SIMVASTATIN
  4. PROTONIX [Concomitant]
     Active Substance: PANTOPRAZOLE SODIUM
  5. CELEXA [Concomitant]
     Active Substance: CITALOPRAM HYDROBROMIDE

REACTIONS (4)
  - Gastric ulcer haemorrhage [None]
  - Faeces discoloured [None]
  - Internal haemorrhage [None]
  - Expired product administered [Unknown]

NARRATIVE: CASE EVENT DATE: 201410
